FAERS Safety Report 5423902-6 (Version None)
Quarter: 2007Q3

REPORT INFORMATION
  Report Type: 
  Country: None (occurrence: None)
  Receive Date: 20070823
  Receipt Date: 20070816
  Transmission Date: 20080115
  Serious: Yes (Other)
  Sender: FDA-Public Use
  Company Number: US-GENENTECH-245442

PATIENT
  Sex: Female
  Weight: 115.19 kg

DRUGS (6)
  1. XOLAIR [Suspect]
     Indication: ASTHMA
     Dosage: 225 MG, Q2W
     Route: 058
     Dates: start: 20070712
  2. BENADRYL [Concomitant]
     Indication: DRUG USE FOR UNKNOWN INDICATION
     Dosage: 25 UNK, PRN
  3. FLOVENT [Concomitant]
     Indication: DRUG USE FOR UNKNOWN INDICATION
     Dosage: 2 PUFF, BID
  4. SEREVENT [Concomitant]
     Indication: DRUG USE FOR UNKNOWN INDICATION
     Dosage: 1 PUFF, BID
  5. ALBUTEROL [Concomitant]
     Indication: DRUG USE FOR UNKNOWN INDICATION
     Dosage: UNK, PRN
  6. SINGULAIR [Concomitant]
     Indication: DRUG USE FOR UNKNOWN INDICATION
     Dosage: 10 MG, QD

REACTIONS (2)
  - ANAPHYLACTIC REACTION [None]
  - LATEX ALLERGY [None]
